FAERS Safety Report 15986426 (Version 8)
Quarter: 2020Q1

REPORT INFORMATION
  Report Type: Spontaneous
  Country: BR (occurrence: BR)
  Receive Date: 20190220
  Receipt Date: 20200330
  Transmission Date: 20200409
  Serious: Yes (Other)
  Sender: FDA-Public Use
  Company Number: BR-GLAXOSMITHKLINE-BR2017GSK149224

PATIENT
  Sex: Female
  Weight: 96 kg

DRUGS (6)
  1. SERETIDE [Concomitant]
     Active Substance: FLUTICASONE PROPIONATE\SALMETEROL XINAFOATE
     Indication: PRODUCT USED FOR UNKNOWN INDICATION
     Dosage: UNK
  2. VELIJA [Concomitant]
     Active Substance: DULOXETINE HYDROCHLORIDE
     Indication: FIBROMYALGIA
     Dosage: UNK
  3. BENLYSTA [Suspect]
     Active Substance: BELIMUMAB
     Indication: SYSTEMIC LUPUS ERYTHEMATOSUS
     Dosage: 960 MG, UNK
     Dates: start: 20170809
  4. CHLOROQUINE PHOSPHATE. [Suspect]
     Active Substance: CHLOROQUINE PHOSPHATE
  5. DEFLAZACORT [Concomitant]
     Active Substance: DEFLAZACORT
     Indication: FIBROMYALGIA
     Dosage: UNK
  6. CORTISONE ACETATE. [Concomitant]
     Active Substance: CORTISONE ACETATE
     Indication: PRODUCT USED FOR UNKNOWN INDICATION
     Dosage: UNK

REACTIONS (29)
  - Dyspnoea [Unknown]
  - Circumstance or information capable of leading to medication error [Not Recovered/Not Resolved]
  - Systemic lupus erythematosus [Not Recovered/Not Resolved]
  - Malaise [Not Recovered/Not Resolved]
  - Cough [Unknown]
  - Weight increased [Unknown]
  - Vision blurred [Not Recovered/Not Resolved]
  - Emotional distress [Unknown]
  - Weight decreased [Unknown]
  - Depression [Unknown]
  - Choking [Not Recovered/Not Resolved]
  - Skin discolouration [Unknown]
  - Pain in extremity [Unknown]
  - Haematoma [Unknown]
  - Depressed mood [Unknown]
  - Decreased appetite [Not Recovered/Not Resolved]
  - Eye disorder [Not Recovered/Not Resolved]
  - Fatigue [Not Recovered/Not Resolved]
  - Varicose vein [Unknown]
  - Fatigue [Unknown]
  - Product dose omission [Unknown]
  - Visual impairment [Not Recovered/Not Resolved]
  - Hypotension [Not Recovered/Not Resolved]
  - Underdose [Recovered/Resolved]
  - Product availability issue [Unknown]
  - Nephrolithiasis [Unknown]
  - Nervousness [Unknown]
  - Inappropriate schedule of product administration [Recovered/Resolved]
  - Nasopharyngitis [Unknown]
